FAERS Safety Report 7929464-3 (Version None)
Quarter: 2011Q4

REPORT INFORMATION
  Report Type: 
  Country: None (occurrence: None)
  Receive Date: 20111121
  Receipt Date: 20111110
  Transmission Date: 20120403
  Serious: No
  Sender: FDA-Public Use
  Company Number: US-BIOGENIDEC-2011BI043099

PATIENT
  Sex: Female

DRUGS (5)
  1. AVONEX [Suspect]
     Route: 030
     Dates: start: 20010729
  2. AVONEX [Suspect]
     Route: 030
     Dates: start: 20070101, end: 20070806
  3. AVONEX [Suspect]
     Route: 030
  4. AVONEX [Suspect]
     Indication: MULTIPLE SCLEROSIS
     Route: 030
     Dates: start: 20101120
  5. AVONEX [Suspect]
     Route: 030
     Dates: end: 20070101

REACTIONS (5)
  - GASTRIC DISORDER [None]
  - ADVERSE EVENT [None]
  - MULTIPLE SCLEROSIS RELAPSE [None]
  - INFLUENZA LIKE ILLNESS [None]
  - HYPERTHYROIDISM [None]
